FAERS Safety Report 21231450 (Version 2)
Quarter: 2022Q3

REPORT INFORMATION
  Report Type: Report from Study
  Country: MX (occurrence: MX)
  Receive Date: 20220819
  Receipt Date: 20220915
  Transmission Date: 20221027
  Serious: Yes (Other)
  Sender: FDA-Public Use
  Company Number: MX-BAYER-2022A114698

PATIENT
  Sex: Male

DRUGS (2)
  1. EYLEA [Suspect]
     Active Substance: AFLIBERCEPT
     Indication: Neovascular age-related macular degeneration
     Dosage: 50 UL, Q1MON  , SOLUTION FOR INJECTION, STRENGTH: 40MG/ML
     Route: 031
     Dates: start: 20220811
  2. EYLEA [Suspect]
     Active Substance: AFLIBERCEPT
     Dosage: 50 UL, ONCE , SOLUTION FOR INJECTION, STRENGTH: 40MG/ML
     Route: 031
     Dates: start: 20220908, end: 20220908

REACTIONS (5)
  - Eye haemorrhage [Not Recovered/Not Resolved]
  - Product dose omission issue [Not Recovered/Not Resolved]
  - Photopsia [Not Recovered/Not Resolved]
  - Vision blurred [Not Recovered/Not Resolved]
  - Corneal oedema [Not Recovered/Not Resolved]

NARRATIVE: CASE EVENT DATE: 20220811
